FAERS Safety Report 9389041 (Version 2)
Quarter: 2013Q3

REPORT INFORMATION
  Report Type: Spontaneous
  Country: US (occurrence: US)
  Receive Date: 20130708
  Receipt Date: 20130726
  Transmission Date: 20140515
  Serious: Yes (Hospitalization, Other)
  Sender: FDA-Public Use
  Company Number: US-BAXTER-2013BAX024925

PATIENT
  Age: 63 Year
  Sex: Male

DRUGS (3)
  1. DIANEAL LOW CALCIUM [Suspect]
     Indication: PERITONEAL DIALYSIS
     Route: 033
  2. COUMADIN [Suspect]
     Indication: ATRIAL FIBRILLATION
     Route: 065
     Dates: end: 201306
  3. MORPHINE [Suspect]
     Indication: DISCOMFORT
     Route: 065

REACTIONS (8)
  - Streptococcal sepsis [Recovering/Resolving]
  - Atrial fibrillation [Recovering/Resolving]
  - Pericardial effusion [Recovering/Resolving]
  - Pleural effusion [Recovering/Resolving]
  - International normalised ratio increased [Recovered/Resolved]
  - Rectal haemorrhage [Unknown]
  - Peritonitis bacterial [Recovering/Resolving]
  - Discomfort [Recovering/Resolving]
